FAERS Safety Report 7719543-8 (Version None)
Quarter: 2011Q3

REPORT INFORMATION
  Report Type: 
  Country: None (occurrence: None)
  Receive Date: 20110830
  Receipt Date: 20110822
  Transmission Date: 20111222
  Serious: Yes (Death)
  Sender: FDA-Public Use
  Company Number: CA-B.I. PHARMACEUTICALS,INC./RIDGEFIELD-2009-CN-00375CN

PATIENT
  Sex: Female

DRUGS (1)
  1. MELOXICAM [Suspect]

REACTIONS (1)
  - MYOCARDIAL INFARCTION [None]
